FAERS Safety Report 21979171 (Version 1)
Quarter: 2023Q1

REPORT INFORMATION
  Report Type: Spontaneous
  Country: US (occurrence: US)
  Receive Date: 20230210
  Receipt Date: 20230210
  Transmission Date: 20230418
  Serious: No
  Sender: FDA-Public Use
  Company Number: US-SA-SAC20230206001323

PATIENT
  Age: 18 Year
  Sex: Female

DRUGS (1)
  1. FABRAZYME [Suspect]
     Active Substance: AGALSIDASE BETA
     Indication: Fabry^s disease
     Dosage: FOR 5 MG STRENGTH, DOSE: 30 MG, FOR 55 MG STRENGTH, DOSE: 35 MG, QOW
     Route: 042
     Dates: start: 20210929

REACTIONS (1)
  - Pruritus [Recovered/Resolved]
